FAERS Safety Report 6919016-6 (Version None)
Quarter: 2010Q3

REPORT INFORMATION
  Report Type: 
  Country: None (occurrence: None)
  Receive Date: 20100811
  Receipt Date: 20100803
  Transmission Date: 20110219
  Serious: Yes (Other)
  Sender: FDA-Public Use
  Company Number: US-JNJCH-2010018092

PATIENT
  Sex: Male

DRUGS (1)
  1. SUDAFED S.A. [Suspect]
     Indication: NASOPHARYNGITIS
     Dosage: TEXT:AS DIRECTED
     Route: 048

REACTIONS (3)
  - ARRHYTHMIA [None]
  - ATRIAL FIBRILLATION [None]
  - SOMNOLENCE [None]
